FAERS Safety Report 6404899-9 (Version None)
Quarter: 2009Q4

REPORT INFORMATION
  Report Type: 
  Country: None (occurrence: None)
  Receive Date: 20091019
  Receipt Date: 20091006
  Transmission Date: 20100525
  Serious: Yes (Death, Other)
  Sender: FDA-Public Use
  Company Number: HU-JNJFOC-20091002144

PATIENT

DRUGS (1)
  1. INFLIXIMAB [Suspect]
     Indication: CROHN'S DISEASE
     Dosage: WEEKS 0, 2, AND 6 AND THEN MAINTENANCE THERAPY EVERY 8 WEEKS
     Route: 042

REACTIONS (1)
  - RECTAL CANCER METASTATIC [None]
